FAERS Safety Report 7527493-5 (Version None)
Quarter: 2011Q2

REPORT INFORMATION
  Report Type: 
  Country: None (occurrence: None)
  Receive Date: 20110607
  Receipt Date: 20110526
  Transmission Date: 20111010
  Serious: Yes (Other)
  Sender: FDA-Public Use
  Company Number: JP-CEPHALON-2011002838

PATIENT
  Age: 89 Year
  Sex: Male

DRUGS (6)
  1. FLUCONAZOLE [Concomitant]
  2. BENDAMUSTINE HCL [Suspect]
     Indication: B-CELL LYMPHOMA
     Route: 042
     Dates: start: 20110318, end: 20110319
  3. BENDAMUSTINE HCL [Suspect]
     Route: 042
     Dates: start: 20110519, end: 20110520
  4. FAMOTIDINE [Concomitant]
  5. SULFAMETOSAZOL CON TRIMETOPRIM [Concomitant]
  6. BENDAMUSTINE HCL [Suspect]
     Route: 042
     Dates: start: 20110414, end: 20110415

REACTIONS (2)
  - RASH [None]
  - BONE MARROW FAILURE [None]
